FAERS Safety Report 4737397-9 (Version None)
Quarter: 2005Q3

REPORT INFORMATION
  Report Type: 
  Country: None (occurrence: None)
  Receive Date: 20050809
  Receipt Date: 20050725
  Transmission Date: 20060218
  Serious: Yes (Disabling, Other)
  Sender: FDA-Public Use
  Company Number: 2005AC01118

PATIENT
  Age: 59 Year
  Sex: Male
  Weight: 72 kg

DRUGS (4)
  1. LIDOCAINE [Suspect]
     Indication: ANAESTHESIA
     Route: 008
  2. LIDOCAINE [Suspect]
     Dosage: INJECTED 14 MINS AFTER 1ST DOSE
     Route: 008
  3. BUPIVACAINE [Suspect]
     Indication: ANAESTHESIA
     Route: 008
  4. MORPHINE [Suspect]
     Indication: POSTOPERATIVE ANALGESIA
     Dosage: PRESERVATIVE FREE
     Route: 008

REACTIONS (3)
  - ANAESTHETIC COMPLICATION [None]
  - PAIN [None]
  - PARAPLEGIA [None]
